FAERS Safety Report 7570952-X (Version None)
Quarter: 2011Q2

REPORT INFORMATION
  Report Type: 
  Country: None (occurrence: None)
  Receive Date: 20110624
  Receipt Date: 20110615
  Transmission Date: 20111010
  Serious: Yes (Other)
  Sender: FDA-Public Use
  Company Number: GB-B.I. PHARMACEUTICALS,INC./RIDGEFIELD-2011-BP-10065YA

PATIENT
  Age: 80 Year
  Sex: Male
  Weight: 91 kg

DRUGS (16)
  1. LEVOTHYROXINE SODIUM [Concomitant]
     Dates: start: 20110307
  2. LOSARTAN POTASSIUM [Concomitant]
     Dates: start: 20101206, end: 20110103
  3. CETRABEN (LIGHT LIQUID PARAFFIN) [Concomitant]
     Dates: start: 20110226
  4. ASPIRIN [Concomitant]
     Dates: start: 20110307
  5. BISOPROLOL FUMARATE [Concomitant]
     Dates: start: 20101206, end: 20110103
  6. BISOPROLOL FUMARATE [Concomitant]
     Dates: start: 20110110, end: 20110303
  7. BISOPROLOL FUMARATE [Concomitant]
     Dates: start: 20110307
  8. LEVOTHYROXINE SODIUM [Concomitant]
     Dates: start: 20110110, end: 20110303
  9. TAMSULOSIN HCL [Suspect]
     Dates: start: 20110301
  10. LEVOTHYROXINE SODIUM [Concomitant]
     Dates: start: 20101206, end: 20110103
  11. LOSARTAN POTASSIUM [Concomitant]
     Dates: start: 20110307
  12. TAMSULOSIN HCL [Suspect]
     Dates: start: 20110314
  13. ASPIRIN [Concomitant]
     Dates: start: 20101206, end: 20110103
  14. LOSARTAN POTASSIUM [Concomitant]
     Dates: start: 20110110, end: 20110303
  15. ASPIRIN [Concomitant]
     Dates: start: 20110110, end: 20110303
  16. FELODIPINE [Concomitant]
     Dates: start: 20110226

REACTIONS (2)
  - URINARY INCONTINENCE [None]
  - LOSS OF BLADDER SENSATION [None]
